FAERS Safety Report 4967969-8 (Version None)
Quarter: 2006Q2

REPORT INFORMATION
  Report Type: 
  Country: None (occurrence: None)
  Receive Date: 20060410
  Receipt Date: 20060329
  Transmission Date: 20061013
  Serious: Yes (Hospitalization)
  Sender: FDA-Public Use
  Company Number: US-MERCK-0604USA00130

PATIENT
  Age: 51 Year
  Sex: Female
  Weight: 78 kg

DRUGS (12)
  1. VIOXX [Suspect]
     Indication: ARTHRITIS
     Route: 048
     Dates: start: 20010124, end: 20020822
  2. CALCIUM (UNSPECIFIED) [Concomitant]
     Route: 065
  3. VITAMINS (UNSPECIFIED) [Concomitant]
     Route: 065
  4. FOSAMAX [Concomitant]
     Indication: OSTEOPOROSIS
     Route: 065
  5. PAXIL [Concomitant]
     Indication: DEPRESSION
     Route: 065
  6. TIAZAC [Concomitant]
     Indication: HYPERTENSION
     Route: 065
  7. HYDROCHLOROTHIAZIDE [Concomitant]
     Route: 065
  8. PREMARIN [Concomitant]
     Route: 065
  9. PROCARDIA [Concomitant]
     Indication: HYPERTENSION
     Route: 065
  10. PREVACID [Concomitant]
     Indication: DYSPEPSIA
     Route: 065
  11. PERCOCET [Concomitant]
     Route: 065
  12. CORTICOSTEROIDS (UNSPECIFIED) [Concomitant]
     Indication: BACK PAIN
     Route: 051

REACTIONS (12)
  - ARTHRALGIA [None]
  - BLOOD CHOLESTEROL INCREASED [None]
  - DILATATION VENTRICULAR [None]
  - FATIGUE [None]
  - GANGLION [None]
  - LACUNAR INFARCTION [None]
  - MENINGIOMA [None]
  - OSTEITIS [None]
  - SCIATICA [None]
  - SKIN HYPERPIGMENTATION [None]
  - SURGERY [None]
  - VAGINAL DISCHARGE [None]
